FAERS Safety Report 22356847 (Version 1)
Quarter: 2023Q2

REPORT INFORMATION
  Report Type: Spontaneous
  Country: UY (occurrence: UY)
  Receive Date: 20230523
  Receipt Date: 20230523
  Transmission Date: 20230721
  Serious: Yes (Hospitalization)
  Sender: FDA-Public Use
  Company Number: UY-FreseniusKabi-FK202306820

PATIENT
  Age: 92 Year
  Sex: Female

DRUGS (1)
  1. KABIVEN [Suspect]
     Active Substance: AMINO ACIDS\ANHYDROUS DEXTROSE\CALCIUM CHLORIDE\MAGNESIUM SULFATE HEPTAHYDRATE\POTASSIUM CHLORIDE\SO
     Indication: Product used for unknown indication
     Route: 042
     Dates: start: 20230420

REACTIONS (2)
  - Application site extravasation [Recovered/Resolved]
  - Application site burn [Recovered/Resolved]

NARRATIVE: CASE EVENT DATE: 20230420
